FAERS Safety Report 9378822 (Version 3)
Quarter: 2013Q3

REPORT INFORMATION
  Report Type: Spontaneous
  Country: US (occurrence: US)
  Receive Date: 20130702
  Receipt Date: 20130812
  Transmission Date: 20140515
  Serious: Yes (Other)
  Sender: FDA-Public Use
  Company Number: US-TEVA-415499USA

PATIENT
  Sex: Female

DRUGS (1)
  1. NITROFURANTOIN [Suspect]

REACTIONS (2)
  - Coeliac disease [Recovered/Resolved]
  - Dyspepsia [Recovered/Resolved]
